FAERS Safety Report 11336573 (Version 3)
Quarter: 2015Q4

REPORT INFORMATION
  Report Type: Spontaneous
  Country: None (occurrence: US)
  Receive Date: 20150804
  Receipt Date: 20151111
  Transmission Date: 20160304
  Serious: Yes (Other)
  Sender: FDA-Public Use
  Company Number: US-ENDO PHARMACEUTICALS INC.-2015-001836

PATIENT
  Age: 50 Year
  Sex: Male
  Weight: 88.53 kg

DRUGS (9)
  1. MONTELUKAST SODIUM TABLETS 10MG [Concomitant]
     Active Substance: MONTELUKAST SODIUM
     Indication: NASAL CONGESTION
     Dosage: ONE TABLET AT NIGHT
     Route: 065
     Dates: start: 201411
  2. L-LYSINE [Concomitant]
     Active Substance: LYSINE
     Indication: PRODUCT USED FOR UNKNOWN INDICATION
     Route: 065
  3. XIAFLEX [Suspect]
     Active Substance: COLLAGENASE CLOSTRIDIUM HISTOLYTICUM
     Indication: PEYRONIE^S DISEASE
     Route: 026
     Dates: start: 201505
  4. XIAFLEX [Suspect]
     Active Substance: COLLAGENASE CLOSTRIDIUM HISTOLYTICUM
     Route: 026
     Dates: start: 20150511, end: 20150511
  5. XIAFLEX [Suspect]
     Active Substance: COLLAGENASE CLOSTRIDIUM HISTOLYTICUM
     Route: 026
     Dates: start: 201502
  6. XIAFLEX [Suspect]
     Active Substance: COLLAGENASE CLOSTRIDIUM HISTOLYTICUM
     Route: 026
     Dates: start: 201504
  7. CIALIS [Concomitant]
     Active Substance: TADALAFIL
     Indication: PRODUCT USED FOR UNKNOWN INDICATION
     Route: 065
  8. STENDRA [Concomitant]
     Active Substance: AVANAFIL
     Indication: PRODUCT USED FOR UNKNOWN INDICATION
     Route: 065
  9. ZYRTEC [Concomitant]
     Active Substance: CETIRIZINE HYDROCHLORIDE
     Indication: PRODUCT USED FOR UNKNOWN INDICATION
     Route: 065

REACTIONS (10)
  - Feeling abnormal [Recovered/Resolved]
  - Inappropriate schedule of drug administration [Recovered/Resolved]
  - Hypertension [Recovered/Resolved]
  - Tachycardia [Recovered/Resolved]
  - Presyncope [Recovered/Resolved]
  - Injection site haemorrhage [Recovered/Resolved]
  - Injection site swelling [Recovered/Resolved]
  - Flushing [Recovered/Resolved]
  - Hypersensitivity [Recovered/Resolved]
  - Hyperhidrosis [Recovered/Resolved]

NARRATIVE: CASE EVENT DATE: 201502
